FAERS Safety Report 17600462 (Version 1)
Quarter: 2020Q1

REPORT INFORMATION
  Report Type: Spontaneous
  Country: US (occurrence: US)
  Receive Date: 20200330
  Receipt Date: 20200330
  Transmission Date: 20200409
  Serious: No
  Sender: FDA-Public Use
  Company Number: US-ASTRAZENECA-2020SE43882

PATIENT
  Sex: Male
  Weight: 9.2 kg

DRUGS (4)
  1. SYNAGIS [Suspect]
     Active Substance: PALIVIZUMAB
     Indication: SMALL FOR DATES BABY
     Route: 030
  2. SYNAGIS [Suspect]
     Active Substance: PALIVIZUMAB
     Indication: CANDIDA INFECTION
     Route: 030
  3. ALBUTEROL. [Concomitant]
     Active Substance: ALBUTEROL
  4. PULMICORT TURBUHALER [Suspect]
     Active Substance: BUDESONIDE
     Dosage: 0.25MG/2ML
     Route: 055

REACTIONS (1)
  - Weight decreased [Unknown]
